FAERS Safety Report 5778474-3 (Version None)
Quarter: 2008Q2

REPORT INFORMATION
  Report Type: 
  Country: None (occurrence: None)
  Receive Date: 20080617
  Receipt Date: 20080617
  Transmission Date: 20081010
  Serious: Yes (Hospitalization)
  Sender: FDA-Public Use
  Company Number: None

PATIENT
  Age: 42 Year
  Sex: Female
  Weight: 79.3795 kg

DRUGS (1)
  1. SYMAX DUOTABS   0.375 MG   CAPELLON PHARMACEUTICALS [Suspect]
     Indication: ABDOMINAL PAIN
     Dosage: ONE TAB  TWICE DAILY PO
     Route: 048
     Dates: start: 20080503, end: 20080530

REACTIONS (2)
  - CHEST PAIN [None]
  - ELECTROCARDIOGRAM ABNORMAL [None]
